FAERS Safety Report 15960755 (Version 1)
Quarter: 2019Q1

REPORT INFORMATION
  Report Type: Spontaneous
  Country: US (occurrence: US)
  Receive Date: 20190214
  Receipt Date: 20190214
  Transmission Date: 20190417
  Serious: Yes (Life-Threatening, Hospitalization, Other)
  Sender: FDA-Public Use
  Company Number: US-HIKMA PHARMACEUTICALS USA INC.-US-H14001-19-00861

PATIENT
  Age: 20 Month
  Sex: Male

DRUGS (5)
  1. IMMUNOGLOBULINS [Concomitant]
     Active Substance: IMMUNE GLOBULIN NOS
     Indication: HAEMOPHAGOCYTIC LYMPHOHISTIOCYTOSIS
     Route: 042
  2. DEXAMETHASONE. [Suspect]
     Active Substance: DEXAMETHASONE
     Indication: HAEMOPHAGOCYTIC LYMPHOHISTIOCYTOSIS
     Route: 065
  3. ETOPOSIDE. [Suspect]
     Active Substance: ETOPOSIDE
     Indication: HAEMOPHAGOCYTIC LYMPHOHISTIOCYTOSIS
     Route: 065
  4. EMAPALUMAB [Concomitant]
     Active Substance: EMAPALUMAB
     Indication: HAEMOPHAGOCYTIC LYMPHOHISTIOCYTOSIS
     Route: 065
  5. RITUXIMAB. [Concomitant]
     Active Substance: RITUXIMAB
     Indication: HAEMOPHAGOCYTIC LYMPHOHISTIOCYTOSIS
     Route: 065

REACTIONS (7)
  - Cytomegalovirus viraemia [Recovered/Resolved]
  - Adenovirus test positive [Recovered/Resolved]
  - Epstein-Barr viraemia [Recovered/Resolved]
  - Condition aggravated [Recovered/Resolved]
  - Escherichia bacteraemia [Recovered/Resolved]
  - Fungal abscess central nervous system [Recovered/Resolved]
  - Trichosporon infection [Recovered/Resolved]
